FAERS Safety Report 20126693 (Version 2)
Quarter: 2022Q1

REPORT INFORMATION
  Report Type: Report from Study
  Country: AU (occurrence: AU)
  Receive Date: 20211129
  Receipt Date: 20220105
  Transmission Date: 20220424
  Serious: Yes (Hospitalization, Other)
  Sender: FDA-Public Use
  Company Number: AU-BRISTOL-MYERS SQUIBB COMPANY-BMS-2021-123009

PATIENT
  Age: 19 Year
  Sex: Female

DRUGS (2)
  1. NIVOLUMAB [Suspect]
     Active Substance: NIVOLUMAB
     Indication: Mesothelioma
     Dosage: 240 MILLIGRAM, Q2WK
     Route: 042
     Dates: start: 20210308, end: 20211116
  2. IPILIMUMAB [Suspect]
     Active Substance: IPILIMUMAB
     Indication: Mesothelioma
     Dosage: 1 MILLIGRAM/KILOGRAM, Q6WK
     Route: 042
     Dates: start: 20210308, end: 20211116

REACTIONS (2)
  - Small intestinal obstruction [Unknown]
  - Immune-mediated hyperthyroidism [Unknown]

NARRATIVE: CASE EVENT DATE: 20211115
